FAERS Safety Report 8459009-3 (Version None)
Quarter: 2012Q2

REPORT INFORMATION
  Report Type: 
  Country: None (occurrence: None)
  Receive Date: 20120622
  Receipt Date: 20120608
  Transmission Date: 20120825
  Serious: Yes (Other)
  Sender: FDA-Public Use
  Company Number: FR-ROCHE-1077152

PATIENT

DRUGS (1)
  1. VEMURAFENIB [Suspect]
     Indication: METASTATIC MALIGNANT MELANOMA

REACTIONS (11)
  - SQUAMOUS CELL CARCINOMA OF SKIN [None]
  - RENAL FAILURE [None]
  - BLOOD ALKALINE PHOSPHATASE INCREASED [None]
  - KERATOACANTHOMA [None]
  - ASTHENIA [None]
  - ERYTHEMA [None]
  - CHOLESTASIS [None]
  - PHOTOSENSITIVITY REACTION [None]
  - ARTHRALGIA [None]
  - RASH MACULO-PAPULAR [None]
  - ACTINIC KERATOSIS [None]
